FAERS Safety Report 9521879 (Version 1)
Quarter: 2013Q3

REPORT INFORMATION
  Report Type: Spontaneous
  Country: US (occurrence: US)
  Receive Date: 20130913
  Receipt Date: 20130913
  Transmission Date: 20140515
  Serious: Yes (Hospitalization, Other)
  Sender: FDA-Public Use
  Company Number: US-ELI_LILLY_AND_COMPANY-US201309002170

PATIENT
  Sex: Male

DRUGS (1)
  1. AXIRON [Suspect]

REACTIONS (1)
  - Atrial fibrillation [Unknown]
